FAERS Safety Report 4264623-5 (Version None)
Quarter: 2004Q1

REPORT INFORMATION
  Report Type: 
  Country: None (occurrence: None)
  Receive Date: 20040102
  Receipt Date: 20031223
  Transmission Date: 20041129
  Serious: Yes (Hospitalization)
  Sender: FDA-Public Use
  Company Number: HQWYE349602DEC03

PATIENT
  Age: 56 Year
  Sex: Female
  Weight: 91.25 kg

DRUGS (9)
  1. EFFEXOR [Suspect]
     Indication: MAJOR DEPRESSION
     Dosage: 7 TABLET 1X PER 1 DAY, ORAL
     Route: 048
     Dates: start: 20030903, end: 20031013
  2. EFFEXOR [Suspect]
     Indication: MAJOR DEPRESSION
     Dosage: 7 TABLET 1X PER 1 DAY, ORAL
     Route: 048
     Dates: start: 20031014, end: 20031029
  3. EFFEXOR XR [Suspect]
     Indication: MAJOR DEPRESSION
     Dosage: SEE IMAGE
     Route: 048
     Dates: start: 20031103, end: 20031104
  4. EFFEXOR XR [Suspect]
     Indication: MAJOR DEPRESSION
     Dosage: SEE IMAGE
     Route: 048
     Dates: start: 20031105, end: 20031109
  5. EFFEXOR XR [Suspect]
     Indication: MAJOR DEPRESSION
     Dosage: SEE IMAGE
     Route: 048
     Dates: start: 20031110, end: 20031113
  6. EFFEXOR XR [Suspect]
     Indication: MAJOR DEPRESSION
     Dosage: SEE IMAGE
     Route: 048
     Dates: start: 20031114, end: 20031115
  7. EFFEXOR XR [Suspect]
     Indication: MAJOR DEPRESSION
     Dosage: SEE IMAGE
     Route: 048
     Dates: start: 20031116, end: 20031118
  8. ADVIL [Concomitant]
  9. TYLENOL [Concomitant]

REACTIONS (16)
  - ANORGASMIA [None]
  - BLOOD ALKALINE PHOSPHATASE INCREASED [None]
  - CONDITION AGGRAVATED [None]
  - DRUG WITHDRAWAL SYNDROME [None]
  - EYE PAIN [None]
  - HEADACHE [None]
  - INTERMITTENT CLAUDICATION [None]
  - IRRITABILITY [None]
  - JOINT STIFFNESS [None]
  - MUSCLE RIGIDITY [None]
  - MYALGIA [None]
  - PAIN OF SKIN [None]
  - POLYMYALGIA RHEUMATICA [None]
  - RED BLOOD CELL SEDIMENTATION RATE INCREASED [None]
  - THIRST [None]
  - TREATMENT NONCOMPLIANCE [None]
